FAERS Safety Report 7859267-X (Version None)
Quarter: 2011Q4

REPORT INFORMATION
  Report Type: 
  Country: None (occurrence: None)
  Receive Date: 20111027
  Receipt Date: 20111027
  Transmission Date: 20120403
  Serious: Yes (Life-Threatening, Other)
  Sender: FDA-Public Use
  Company Number: None

PATIENT
  Age: 47 Year
  Sex: Female
  Weight: 81.646 kg

DRUGS (2)
  1. ZOCOR [Concomitant]
  2. ZOCOR [Suspect]
     Indication: BLOOD CHOLESTEROL INCREASED
     Dosage: I TIME A DAY AT BED TIME
     Route: 048
     Dates: start: 20070101, end: 20111025

REACTIONS (7)
  - MYALGIA [None]
  - RESTLESSNESS [None]
  - VITAMIN D DECREASED [None]
  - FATIGUE [None]
  - CHROMATURIA [None]
  - WEIGHT DECREASED [None]
  - MUSCLE ATROPHY [None]
